FAERS Safety Report 19932790 (Version 7)
Quarter: 2022Q1

REPORT INFORMATION
  Report Type: Report from Study
  Country: US (occurrence: US)
  Receive Date: 20211008
  Receipt Date: 20220321
  Transmission Date: 20220424
  Serious: Yes (Death, Hospitalization, Other)
  Sender: FDA-Public Use
  Company Number: US-BoehringerIngelheim-2021-BI-119166

PATIENT
  Age: 76 Year
  Sex: Male

DRUGS (1)
  1. OFEV [Suspect]
     Active Substance: NINTEDANIB
     Indication: Idiopathic pulmonary fibrosis
     Route: 048
     Dates: start: 20170724

REACTIONS (7)
  - Death [Fatal]
  - COVID-19 [Unknown]
  - Cholecystectomy [Unknown]
  - Pneumonia [Unknown]
  - Staphylococcal infection [Unknown]
  - Urinary tract infection [Unknown]
  - Gastrointestinal haemorrhage [Unknown]

NARRATIVE: CASE EVENT DATE: 20210101
